FAERS Safety Report 7027426-4 (Version None)
Quarter: 2010Q4

REPORT INFORMATION
  Report Type: 
  Country: None (occurrence: None)
  Receive Date: 20101004
  Receipt Date: 20100924
  Transmission Date: 20110411
  Serious: Yes (Other)
  Sender: FDA-Public Use
  Company Number: US-ASTRAZENECA-2008UW11239

PATIENT
  Age: 77 Year
  Sex: Female

DRUGS (7)
  1. CRESTOR [Suspect]
     Route: 048
     Dates: start: 20060101
  2. BONIVA [Concomitant]
  3. SYNTHROID [Concomitant]
  4. MILK OF MAGNESIA TAB [Concomitant]
     Dosage: AS REQUIRED.
  5. LORAZEPAM [Concomitant]
     Indication: NERVOUSNESS
  6. CO-Q-10 [Concomitant]
  7. ANTIHYPERTENSIVES [Concomitant]
     Indication: HYPERTENSION

REACTIONS (9)
  - ABDOMINAL PAIN UPPER [None]
  - BACK PAIN [None]
  - BLOOD URINE PRESENT [None]
  - CHILLS [None]
  - FLATULENCE [None]
  - HEART RATE INCREASED [None]
  - INSOMNIA [None]
  - SOMNOLENCE [None]
  - URINARY TRACT INFECTION [None]
